FAERS Safety Report 24232938 (Version 1)
Quarter: 2024Q3

REPORT INFORMATION
  Report Type: Report from Study
  Country: US (occurrence: US)
  Receive Date: 20240821
  Receipt Date: 20240821
  Transmission Date: 20241016
  Serious: Yes (Hospitalization, Other)
  Sender: MERCK
  Company Number: US-009507513-2407USA007368

PATIENT
  Age: 73 Year
  Sex: Female

DRUGS (4)
  1. SOTATERCEPT [Suspect]
     Active Substance: SOTATERCEPT
     Indication: Pulmonary arterial hypertension
     Dosage: 0.3 MILLILITER, Q3W; STRENGTH: 45 MG
     Route: 058
     Dates: start: 202407, end: 202407
  2. SOTATERCEPT [Suspect]
     Active Substance: SOTATERCEPT
     Dosage: 0.6 MILLILITER, Q3W; STRENGTH: 45 MG
     Route: 058
     Dates: start: 2024
  3. TADALAFIL [Concomitant]
     Active Substance: TADALAFIL
     Dosage: UNK
  4. TYVASO [Concomitant]
     Active Substance: TREPROSTINIL
     Dosage: UNK

REACTIONS (7)
  - Gastrointestinal haemorrhage [Unknown]
  - Dyspnoea [Unknown]
  - Ecchymosis [Unknown]
  - Pulmonary function test decreased [Unknown]
  - Fatigue [Unknown]
  - Back pain [Recovered/Resolved]
  - Muscle spasms [Recovered/Resolved]

NARRATIVE: CASE EVENT DATE: 20240701
